FAERS Safety Report 9133405 (Version 1)
Quarter: 2013Q1

REPORT INFORMATION
  Report Type: Spontaneous
  Country: US (occurrence: US)
  Receive Date: 20130301
  Receipt Date: 20130301
  Transmission Date: 20140127
  Serious: No
  Sender: FDA-Public Use
  Company Number: US-009507513-1302USA012289

PATIENT
  Age: 29 Year
  Sex: Female
  Weight: 79.82 kg

DRUGS (1)
  1. IMPLANON [Suspect]
     Indication: CONTRACEPTION
     Dosage: 1 STANDARD DOSE OF 1 (1 ROD)
     Route: 059
     Dates: start: 20120326

REACTIONS (3)
  - Device breakage [Unknown]
  - Product quality issue [Unknown]
  - Amenorrhoea [Unknown]
